FAERS Safety Report 4263752-X (Version None)
Quarter: 2004Q1

REPORT INFORMATION
  Report Type: 
  Country: None (occurrence: None)
  Receive Date: 20040102
  Receipt Date: 20031212
  Transmission Date: 20041129
  Serious: Yes (Disabling)
  Sender: FDA-Public Use
  Company Number: JP_031202336

PATIENT
  Age: 9 Year
  Sex: Female
  Weight: 7 kg

DRUGS (13)
  1. VANCOMYCIN HYDROCHLORIDE [Suspect]
     Indication: PNEUMONIA
     Dosage: 770 MG/DAY
     Dates: start: 20030923, end: 20030927
  2. LASIX [Concomitant]
  3. SOLDACTONE (POTASSIUM CANRENOATE) [Concomitant]
  4. CEFMETAZON (CEFMETAZOLE SODIUM) [Concomitant]
  5. GLUCONSAN K (POTASSIUM GLUCONATE) [Concomitant]
  6. BISOLVON (BROMHEXINE HYDROCHLORIDE) [Concomitant]
  7. PERIACTIN [Concomitant]
  8. GLUTIDE (GLUTATHIONE) [Concomitant]
  9. GLYCYRON [Concomitant]
  10. FAMOTIDINE [Concomitant]
  11. DECADRON [Concomitant]
  12. DORMICUM (NITRAZEPAM) [Concomitant]
  13. WAKOBITAL (PHENOBARBITAL SODIUM) [Concomitant]

REACTIONS (4)
  - DEAFNESS NEUROSENSORY [None]
  - DRUG LEVEL INCREASED [None]
  - MEDICATION ERROR [None]
  - RENAL IMPAIRMENT [None]
